FAERS Safety Report 24085712 (Version 3)
Quarter: 2024Q3

REPORT INFORMATION
  Report Type: Spontaneous
  Country: US (occurrence: US)
  Receive Date: 20240712
  Receipt Date: 20240920
  Transmission Date: 20241016
  Serious: Yes (Other)
  Sender: PFIZER
  Company Number: US-PFIZER INC-PV202400091283

PATIENT
  Age: 68 Year
  Sex: Female

DRUGS (3)
  1. XELJANZ [Suspect]
     Active Substance: TOFACITINIB CITRATE
     Indication: Rheumatoid arthritis
     Dosage: ONCE TAKING XELJANZ REGULARLY TWICE DAILY
     Route: 048
     Dates: start: 202402
  2. XELJANZ [Suspect]
     Active Substance: TOFACITINIB CITRATE
     Dosage: 5MG ONCE DAILY
     Route: 048
     Dates: start: 20240709
  3. PREDNISONE [Concomitant]
     Active Substance: PREDNISONE
     Dosage: UNK

REACTIONS (11)
  - Macular hole [Recovering/Resolving]
  - Product dose omission in error [Unknown]
  - Off label use [Unknown]
  - Memory impairment [Unknown]
  - Nausea [Recovered/Resolved]
  - Fall [Unknown]
  - Pain [Not Recovered/Not Resolved]
  - Abdominal discomfort [Recovered/Resolved]
  - COVID-19 [Not Recovered/Not Resolved]
  - Illness [Not Recovered/Not Resolved]
  - Feeling abnormal [Not Recovered/Not Resolved]

NARRATIVE: CASE EVENT DATE: 20240706
